FAERS Safety Report 7734000-0 (Version None)
Quarter: 2011Q3

REPORT INFORMATION
  Report Type: 
  Country: None (occurrence: None)
  Receive Date: 20110907
  Receipt Date: 20110828
  Transmission Date: 20111222
  Serious: Yes (Death, Hospitalization, Other)
  Sender: FDA-Public Use
  Company Number: CA-ELI_LILLY_AND_COMPANY-CA201108008538

PATIENT
  Age: 82 Year
  Sex: Male

DRUGS (15)
  1. PREDNISONE [Concomitant]
     Dosage: UNK, UNKNOWN
     Route: 065
  2. FORTEO [Suspect]
     Indication: OSTEOPOROSIS
     Dosage: 20 UG, QD
     Route: 058
     Dates: start: 20110713
  3. PLAQUENIL [Concomitant]
     Dosage: UNK, UNKNOWN
     Route: 065
  4. RAMIPRIL [Concomitant]
     Dosage: UNK, UNKNOWN
     Route: 065
  5. FERROUS GLUCONATE [Concomitant]
     Dosage: UNK, UNKNOWN
     Route: 065
  6. ASCORBIC ACID [Concomitant]
     Dosage: UNK, UNKNOWN
     Route: 065
  7. VITAMIN D [Concomitant]
  8. KINERET [Concomitant]
     Dosage: UNK, UNKNOWN
     Route: 065
  9. OXYCONTIN [Concomitant]
     Dosage: UNK, UNKNOWN
     Route: 065
  10. METOPROLOL [Concomitant]
     Dosage: UNK, UNKNOWN
     Route: 065
  11. ZANTAC [Concomitant]
     Dosage: UNK, UNKNOWN
     Route: 065
  12. COLCHICINE [Concomitant]
     Dosage: UNK, UNKNOWN
     Route: 065
  13. CALCIMAR [Concomitant]
     Dosage: UNK, UNKNOWN
     Route: 065
  14. PREGABALIN [Concomitant]
     Dosage: UNK, UNKNOWN
     Route: 065
  15. CITALOPRAM [Concomitant]
     Dosage: UNK, UNKNOWN
     Route: 065

REACTIONS (4)
  - METASTATIC MALIGNANT MELANOMA [None]
  - FALL [None]
  - DEATH [None]
  - HOSPITALISATION [None]
